FAERS Safety Report 9293511 (Version 1)
Quarter: 2013Q2

REPORT INFORMATION
  Report Type: Spontaneous
  Country: MX (occurrence: MX)
  Receive Date: 20130516
  Receipt Date: 20130516
  Transmission Date: 20140414
  Serious: Yes (Other)
  Sender: FDA-Public Use
  Company Number: MX-GLAXOSMITHKLINE-A1023733A

PATIENT
  Sex: Female

DRUGS (3)
  1. AROPAX [Suspect]
     Indication: NERVOUSNESS
     Dosage: 20MG PER DAY
     Route: 048
     Dates: start: 20121017
  2. LYRICA [Concomitant]
     Indication: NERVOUSNESS
     Dosage: 1U PER DAY
     Route: 065
  3. TAFIL [Concomitant]
     Dosage: 1U PER DAY
     Route: 065

REACTIONS (7)
  - Spinal cord disorder [Unknown]
  - Headache [Unknown]
  - Pain [Unknown]
  - X-ray abnormal [Unknown]
  - Malaise [Unknown]
  - Mood altered [Unknown]
  - Nervousness [Unknown]
